FAERS Safety Report 5022341-X (Version None)
Quarter: 2006Q2

REPORT INFORMATION
  Report Type: 
  Country: None (occurrence: None)
  Receive Date: 20060501
  Receipt Date: 20050718
  Transmission Date: 20061013
  Serious: Yes (Other)
  Sender: FDA-Public Use
  Company Number: 005224

PATIENT
  Age: 62 Year
  Sex: Female

DRUGS (2)
  1. ZIAC [Suspect]
     Indication: HYPERTENSION
     Dosage: 1.00 TABLET, BID, ORAL
     Route: 048
     Dates: start: 20020101
  2. VITAMINS [Concomitant]

REACTIONS (1)
  - HALLUCINATION [None]
